FAERS Safety Report 5880178-3 (Version None)
Quarter: 2008Q3

REPORT INFORMATION
  Report Type: 
  Country: None (occurrence: None)
  Receive Date: 20080912
  Receipt Date: 20080904
  Transmission Date: 20090109
  Serious: Yes (Hospitalization)
  Sender: FDA-Public Use
  Company Number: IT-ABBOTT-08P-083-0474042-00

PATIENT
  Age: 64 Year
  Sex: Male

DRUGS (5)
  1. ERYTHROMYCIN [Suspect]
     Indication: PYREXIA
     Route: 065
  2. ERYTHROMYCIN [Suspect]
     Indication: DISCOMFORT
  3. METHYLPREDNISOLONE 16MG TAB [Suspect]
     Indication: DRUG USE FOR UNKNOWN INDICATION
     Route: 065
  4. IRBESARTAN [Concomitant]
     Indication: HYPERTENSION
     Dosage: 300 MG/DIE
  5. ATENOLOL [Concomitant]
     Indication: HYPERTENSION
     Dosage: 100 MG/DIE

REACTIONS (2)
  - HALLUCINATION [None]
  - TREMOR [None]
